FAERS Safety Report 7805523-0 (Version None)
Quarter: 2011Q4

REPORT INFORMATION
  Report Type: 
  Country: None (occurrence: None)
  Receive Date: 20111010
  Receipt Date: 20111004
  Transmission Date: 20120403
  Serious: Yes (Hospitalization, Other)
  Sender: FDA-Public Use
  Company Number: US-ABBOTT-11P-163-0860709-00

PATIENT
  Sex: Male

DRUGS (2)
  1. HUMIRA [Suspect]
     Indication: CROHN'S DISEASE
     Dates: start: 20020101
  2. NEXIUM [Concomitant]
     Indication: GASTROOESOPHAGEAL REFLUX DISEASE

REACTIONS (7)
  - INCISION SITE INFECTION [None]
  - WOUND SECRETION [None]
  - SCAR [None]
  - ABDOMINAL PAIN [None]
  - WHITE BLOOD CELL COUNT INCREASED [None]
  - SMALL INTESTINAL OBSTRUCTION [None]
  - CROHN'S DISEASE [None]
